APPROVED DRUG PRODUCT: LANSOPRAZOLE
Active Ingredient: LANSOPRAZOLE
Strength: 15MG
Dosage Form/Route: CAPSULE, DELAYED REL PELLETS;ORAL
Application: A090331 | Product #001
Applicant: SANDOZ INC
Approved: Apr 23, 2010 | RLD: No | RS: No | Type: DISCN